FAERS Safety Report 11741747 (Version 1)
Quarter: 2015Q4

REPORT INFORMATION
  Report Type: Spontaneous
  Country: JP (occurrence: JP)
  Receive Date: 20151116
  Receipt Date: 20151116
  Transmission Date: 20160304
  Serious: Yes (Death, Hospitalization)
  Sender: FDA-Public Use
  Company Number: JP-WATSON-2015-19255

PATIENT
  Age: 53 Year
  Sex: Male
  Weight: 54 kg

DRUGS (1)
  1. ISONIAZID. [Suspect]
     Active Substance: ISONIAZID
     Indication: ANTIBIOTIC PROPHYLAXIS
     Dosage: 300 MG, DAILY
     Route: 065

REACTIONS (2)
  - Acute hepatic failure [Fatal]
  - Hepatic encephalopathy [Unknown]
